FAERS Safety Report 5089727-9 (Version None)
Quarter: 2006Q3

REPORT INFORMATION
  Report Type: 
  Country: None (occurrence: None)
  Receive Date: 20060823
  Receipt Date: 20060816
  Transmission Date: 20061208
  Serious: Yes (Death, Other)
  Sender: FDA-Public Use
  Company Number: 163-21880-06060574

PATIENT
  Age: 77 Year
  Sex: Male

DRUGS (1)
  1. REVLIMID [Suspect]
     Indication: MYELOPROLIFERATIVE DISORDER
     Dosage: 5 MG, DAILY, ORAL
     Route: 048
     Dates: start: 20060501, end: 20060510

REACTIONS (2)
  - DISEASE PROGRESSION [None]
  - LEUKAEMIA [None]
